FAERS Safety Report 11861491 (Version 1)
Quarter: 2015Q4

REPORT INFORMATION
  Report Type: Report from Study
  Country: BR (occurrence: BR)
  Receive Date: 20151222
  Receipt Date: 20151222
  Transmission Date: 20160305
  Serious: Yes (Death)
  Sender: FDA-Public Use
  Company Number: BR-ABBVIE-15P-020-1477166-00

PATIENT
  Age: 10 Month
  Sex: Female
  Weight: 6 kg

DRUGS (8)
  1. SYNAGIS [Suspect]
     Active Substance: PALIVIZUMAB
     Indication: HEART DISEASE CONGENITAL
     Route: 030
     Dates: start: 20150514
  2. FERROUS [Concomitant]
     Active Substance: FERROUS SULFATE\GLYCINE
     Indication: MINERAL SUPPLEMENTATION
     Route: 048
  3. FUROSEMIDE. [Concomitant]
     Active Substance: FUROSEMIDE
     Indication: CARDIAC DISORDER
     Route: 048
  4. MULTIVITAMIN (PROTOVIT) [Concomitant]
     Indication: VITAMIN SUPPLEMENTATION
     Route: 048
  5. DIGOXINE [Concomitant]
     Active Substance: DIGOXIN
     Indication: CARDIAC DISORDER
     Route: 048
     Dates: start: 201507
  6. HYDROCHLOROTHIAZIDE. [Concomitant]
     Active Substance: HYDROCHLOROTHIAZIDE
     Indication: CARDIAC DISORDER
     Route: 048
     Dates: start: 201507
  7. SPIRONOLACTONE. [Concomitant]
     Active Substance: SPIRONOLACTONE
     Indication: CARDIAC DISORDER
     Route: 048
  8. SYNAGIS [Suspect]
     Active Substance: PALIVIZUMAB
     Indication: HEART DISEASE CONGENITAL

REACTIONS (5)
  - Bronchiolitis [Recovering/Resolving]
  - Dyspnoea [Not Recovered/Not Resolved]
  - Bronchiolitis [Fatal]
  - Lung disorder [Unknown]
  - Secretion discharge [Unknown]

NARRATIVE: CASE EVENT DATE: 201509
